FAERS Safety Report 18120470 (Version 1)
Quarter: 2020Q3

REPORT INFORMATION
  Report Type: Spontaneous
  Country: US (occurrence: US)
  Receive Date: 20200806
  Receipt Date: 20200806
  Transmission Date: 20201103
  Serious: Yes (Hospitalization)
  Sender: FDA-Public Use
  Company Number: US-ABBVIE-20K-163-3302957-00

PATIENT
  Age: 63 Year
  Sex: Female
  Weight: 104.3 kg

DRUGS (7)
  1. GABAPENTIN. [Concomitant]
     Active Substance: GABAPENTIN
     Indication: PRODUCT USED FOR UNKNOWN INDICATION
  2. ZOCOR [Concomitant]
     Active Substance: SIMVASTATIN
     Indication: PRODUCT USED FOR UNKNOWN INDICATION
  3. AIMOVIG [Suspect]
     Active Substance: ERENUMAB-AOOE
     Indication: MIGRAINE PROPHYLAXIS
     Dosage: SINGLE DOSE PREFILLED AUTOINJECTOR
     Route: 065
     Dates: start: 20190311
  4. LEXAPRO [Concomitant]
     Active Substance: ESCITALOPRAM OXALATE
     Indication: PRODUCT USED FOR UNKNOWN INDICATION
  5. ATENOLOL. [Concomitant]
     Active Substance: ATENOLOL
     Indication: PRODUCT USED FOR UNKNOWN INDICATION
  6. AIMOVIG [Suspect]
     Active Substance: ERENUMAB-AOOE
     Route: 065
     Dates: start: 20191015, end: 201910
  7. DEPAKOTE [Suspect]
     Active Substance: DIVALPROEX SODIUM
     Indication: HEADACHE
     Route: 048
     Dates: start: 2019

REACTIONS (9)
  - Blood cholesterol increased [Unknown]
  - Blood glucose increased [Unknown]
  - Pain [Unknown]
  - Hypertension [Recovered/Resolved]
  - Aortic valve incompetence [Unknown]
  - Blood urea increased [Unknown]
  - Low density lipoprotein [Unknown]
  - Headache [Recovering/Resolving]
  - Sinus bradycardia [Unknown]

NARRATIVE: CASE EVENT DATE: 2019
